FAERS Safety Report 23888199 (Version 1)
Quarter: 2024Q2

REPORT INFORMATION
  Report Type: Spontaneous
  Country: GB (occurrence: GB)
  Receive Date: 20240523
  Receipt Date: 20240523
  Transmission Date: 20240716
  Serious: Yes (Other)
  Sender: FDA-Public Use
  Company Number: GB-AMGEN-GBRSP2024101011

PATIENT

DRUGS (3)
  1. PROLIA [Suspect]
     Active Substance: DENOSUMAB
     Indication: Aneurysmal bone cyst
     Dosage: 60 MILLIGRAM, QMO
     Route: 065
  2. ZOLEDRONIC ACID [Concomitant]
     Active Substance: ZOLEDRONIC ACID
     Indication: Aneurysmal bone cyst
     Dosage: 0.025 - 0.050 MG/KG, Q6MO
     Route: 065
  3. VITAMIN D [Concomitant]
     Active Substance: VITAMIN D NOS
     Indication: Aneurysmal bone cyst
     Route: 065

REACTIONS (4)
  - Pathological fracture [Unknown]
  - Hypercalcaemia [Unknown]
  - Drug effective for unapproved indication [Unknown]
  - Off label use [Unknown]
